FAERS Safety Report 6234949-4 (Version None)
Quarter: 2009Q2

REPORT INFORMATION
  Report Type: 
  Country: None (occurrence: None)
  Receive Date: 20090618
  Receipt Date: 20090611
  Transmission Date: 20091009
  Serious: Yes (Life-Threatening, Hospitalization)
  Sender: FDA-Public Use
  Company Number: B0578479A

PATIENT
  Age: 16 Year
  Sex: Female

DRUGS (1)
  1. LAMICTAL [Suspect]
     Indication: DRUG DISPENSING ERROR
     Route: 048
     Dates: start: 20090427, end: 20090514

REACTIONS (11)
  - DERMATITIS BULLOUS [None]
  - DRUG DISPENSING ERROR [None]
  - ERYTHEMA [None]
  - HEPATOCELLULAR INJURY [None]
  - LYMPHADENOPATHY [None]
  - MALAISE [None]
  - OROPHARYNGEAL PAIN [None]
  - PYREXIA [None]
  - RASH VESICULAR [None]
  - SKIN DISORDER [None]
  - TOXIC EPIDERMAL NECROLYSIS [None]
